FAERS Safety Report 8678040 (Version 3)
Quarter: 2012Q4

REPORT INFORMATION
  Report Type: Spontaneous
  Country: DE (occurrence: None)
  Receive Date: 20120705
  Receipt Date: 20120913
  Transmission Date: 20130627
  Serious: Yes (Death)
  Sender: FDA-Public Use
  Company Number: 2012HGS-003774

PATIENT
  Age: 38 Year
  Sex: Female

DRUGS (15)
  1. BENLYSTA [Suspect]
     Indication: SYSTEMIC LUPUS ERYTHEMATOSUS
     Dosage: 1 IN 1 WK, INTRAVENOUS DRIP
     Route: 041
     Dates: start: 20120112
  2. BENLYSTA [Suspect]
     Indication: SYSTEMIC LUPUS ERYTHEMATOSUS
     Dosage: 1 IN 1 WK, INTRAVENOUS DRIP
     Route: 041
     Dates: start: 20120126
  3. BENLYSTA [Suspect]
     Indication: SYSTEMIC LUPUS ERYTHEMATOSUS
     Dosage: 1 IN 1 WK, INTRAVENOUS DRIP
     Route: 041
     Dates: start: 20120216
  4. BENLYSTA [Suspect]
     Indication: SYSTEMIC LUPUS ERYTHEMATOSUS
     Dosage: 1 IN 1 WK, INTRAVENOUS DRIP
     Route: 041
     Dates: start: 20120315
  5. BENLYSTA [Suspect]
     Indication: SYSTEMIC LUPUS ERYTHEMATOSUS
     Dosage: 1 IN 1 WK, INTRAVENOUS DRIP
     Route: 041
     Dates: start: 20120412
  6. BENLYSTA [Suspect]
     Indication: SYSTEMIC LUPUS ERYTHEMATOSUS
     Dosage: 1 IN 1 WK, INTRAVENOUS DRIP
     Route: 041
     Dates: start: 20120509
  7. BENLYSTA [Suspect]
     Indication: SYSTEMIC LUPUS ERYTHEMATOSUS
     Dates: start: 20120607, end: 20120607
  8. HYDROXYCHLOROQUINE SULPHATE (HYDROXYCHLOROQUINE SULFATE) HYDROXYCHLOROQUINE SULFATE) [Concomitant]
  9. DAPSONE [Concomitant]
  10. PREDNISOLONE [Concomitant]
  11. OMEPRAZOLE [Concomitant]
  12. METOPROLOL SUCCINATE [Concomitant]
  13. CELECOXIB [Concomitant]
  14. RANITIDINE HYDROCHLORIDE (RANITIDINE HYDROCHLORIDE) (RANITIDINE HYDROCHLORIDE) [Concomitant]
  15. CLEMASTINE FUMARATE (CLEMASTINE FUMARATE) (CLEMASTINE FUMARATE) [Concomitant]

REACTIONS (1)
  - MYOCARDIAL INFARCTION [None]
